FAERS Safety Report 10503829 (Version 2)
Quarter: 2015Q1

REPORT INFORMATION
  Report Type: Spontaneous
  Country: US (occurrence: US)
  Receive Date: 20141008
  Receipt Date: 20150122
  Transmission Date: 20150720
  Serious: No
  Sender: FDA-Public Use
  Company Number: US-PFIZER INC-2014272023

PATIENT
  Age: 58 Year
  Sex: Female
  Weight: 125 kg

DRUGS (4)
  1. HYDROCHLOROTHIAZIDE. [Concomitant]
     Active Substance: HYDROCHLOROTHIAZIDE
     Indication: HYPERTENSION
     Dosage: 50 MG, DAILY
  2. METFORMIN HYDROCHLORIDE + GLYBURIDE [Concomitant]
     Indication: DIABETES MELLITUS
     Dosage: (GLYBURIDE 2.5 MG/ METFORMIN 500 MG), DAILY
  3. METOPROLOL TARTRATE. [Concomitant]
     Active Substance: METOPROLOL TARTRATE
     Indication: HYPERTENSION
     Dosage: 100 MG, 2X/DAY
  4. GABAPENTIN. [Suspect]
     Active Substance: GABAPENTIN
     Indication: DIABETIC NEUROPATHY
     Dosage: UNK, (DOSE HAS VARIED FROM 100MG TO 300MG)
     Dates: start: 201406, end: 201406

REACTIONS (5)
  - Hangover [Unknown]
  - Activities of daily living impaired [Unknown]
  - Somnolence [Recovered/Resolved]
  - Feeling drunk [Unknown]
  - Drug ineffective [Unknown]

NARRATIVE: CASE EVENT DATE: 201406
